FAERS Safety Report 7825602-1 (Version None)
Quarter: 2011Q4

REPORT INFORMATION
  Report Type: 
  Country: None (occurrence: None)
  Receive Date: 20111019
  Receipt Date: 20111012
  Transmission Date: 20120403
  Serious: Yes (Other)
  Sender: FDA-Public Use
  Company Number: JP-CEPHALON-2011004577

PATIENT
  Age: 73 Year
  Sex: Male

DRUGS (3)
  1. BENDAMUSTINE HCL [Suspect]
     Route: 042
     Dates: start: 20110330, end: 20110331
  2. BENDAMUSTINE HCL [Suspect]
     Indication: B-CELL LYMPHOMA
     Route: 042
     Dates: start: 20110302, end: 20110303
  3. BENDAMUSTINE HCL [Suspect]
     Route: 042
     Dates: start: 20110601, end: 20110602

REACTIONS (1)
  - CYTOMEGALOVIRUS INFECTION [None]
